FAERS Safety Report 5280856-3 (Version None)
Quarter: 2007Q1

REPORT INFORMATION
  Report Type: 
  Country: None (occurrence: None)
  Receive Date: 20070329
  Receipt Date: 20070316
  Transmission Date: 20070707
  Serious: Yes (Hospitalization, Other)
  Sender: FDA-Public Use
  Company Number: FR-ELI_LILLY_AND_COMPANY-FR200612001267

PATIENT
  Age: 71 Year
  Sex: Female

DRUGS (7)
  1. FORTEO [Suspect]
     Indication: OSTEOPOROSIS
     Dosage: 20 UG, DAILY (1/D)
     Route: 058
     Dates: start: 20060809
  2. HYPERIUM [Concomitant]
     Dosage: UNK, UNK
  3. LOXEN [Concomitant]
     Dosage: UNK, UNK
  4. PREVISCAN [Concomitant]
  5. FRACTAL [Concomitant]
     Dosage: UNK, UNK
  6. DIFFU K [Concomitant]
  7. OROCAL [Concomitant]

REACTIONS (3)
  - HYPERTENSION [None]
  - HYPOKALAEMIA [None]
  - RENAL NEOPLASM [None]
